FAERS Safety Report 5599104-X (Version None)
Quarter: 2008Q1

REPORT INFORMATION
  Report Type: 
  Country: None (occurrence: None)
  Receive Date: 20080122
  Receipt Date: 20080116
  Transmission Date: 20080703
  Serious: Yes (Life-Threatening, Hospitalization)
  Sender: FDA-Public Use
  Company Number: GB-BOEHRINGER INGELHEIM PHARMACEUTICALS, INC.-2007-DE-06519GD

PATIENT
  Age: 58 Year
  Sex: Male

DRUGS (1)
  1. TIOTROPIUM-BROMIDE [Suspect]
     Indication: CHRONIC OBSTRUCTIVE PULMONARY DISEASE
     Route: 055
     Dates: start: 20030627

REACTIONS (7)
  - CHOLECYSTITIS ACUTE [None]
  - CHOLELITHIASIS [None]
  - GASTROINTESTINAL PAIN [None]
  - HYPOTENSION [None]
  - LIVER DISORDER [None]
  - PYREXIA [None]
  - SEPSIS [None]
